FAERS Safety Report 9487017 (Version 1)
Quarter: 2013Q3

REPORT INFORMATION
  Report Type: Spontaneous
  Country: DK (occurrence: DK)
  Receive Date: 20130829
  Receipt Date: 20130829
  Transmission Date: 20140515
  Serious: Yes (Death, Other)
  Sender: FDA-Public Use
  Company Number: DK-WATSON-2013-15077

PATIENT
  Age: 40 Year
  Sex: Male

DRUGS (7)
  1. CHLORDIAZEPOXIDE [Suspect]
     Indication: PRODUCT USED FOR UNKNOWN INDICATION
     Dosage: 100 MG, UNK
     Route: 065
     Dates: start: 20130119, end: 20130119
  2. OLANZAPINE (UNKNOWN) [Suspect]
     Indication: PSYCHOTIC DISORDER
     Dosage: 40 MG, UNK
     Route: 065
     Dates: start: 20130114
  3. IMOCLONE [Suspect]
     Indication: INSOMNIA
     Dosage: 7.5 MG, UNK
     Route: 065
     Dates: start: 20130113
  4. METHADONE [Suspect]
     Indication: PRODUCT USED FOR UNKNOWN INDICATION
     Dosage: 100 MG, UNKNOWN
     Route: 065
     Dates: start: 20130118, end: 20130119
  5. METFORMIN [Concomitant]
     Indication: DIABETES MELLITUS
     Dosage: 200 MG, UNK
     Route: 065
     Dates: start: 20130113
  6. RIVOTRIL [Concomitant]
     Indication: EPILEPSY
     Dosage: UNK
     Route: 065
     Dates: start: 20130114, end: 20130118
  7. NOVORAPID [Concomitant]
     Indication: DIABETES MELLITUS
     Dosage: UNK
     Route: 065
     Dates: start: 20130118, end: 20130118

REACTIONS (8)
  - Cardiac arrest [Fatal]
  - Convulsion [Fatal]
  - Malaise [Fatal]
  - Dyspnoea [Fatal]
  - Drug abuse [Fatal]
  - Toxicity to various agents [Fatal]
  - Heart rate increased [Fatal]
  - Vomiting [Fatal]
